FAERS Safety Report 12603880 (Version 4)
Quarter: 2016Q3

REPORT INFORMATION
  Report Type: Spontaneous
  Country: US (occurrence: US)
  Receive Date: 20160728
  Receipt Date: 20160823
  Transmission Date: 20161109
  Serious: Yes (Other)
  Sender: FDA-Public Use
  Company Number: US-AMGEN-USASP2016096729

PATIENT
  Age: 90 Year
  Sex: Female

DRUGS (2)
  1. ENBREL [Suspect]
     Active Substance: ETANERCEPT
     Indication: RHEUMATOID ARTHRITIS
     Dosage: UNK
     Route: 065
  2. DEPO-MEDROL [Concomitant]
     Active Substance: METHYLPREDNISOLONE ACETATE
     Dosage: 40 MG, UNK
     Route: 042

REACTIONS (8)
  - Blood immunoglobulin A decreased [Unknown]
  - Confusional state [Unknown]
  - Anaemia [Unknown]
  - Macular degeneration [Unknown]
  - Deafness [Unknown]
  - Blood immunoglobulin G decreased [Unknown]
  - Blood immunoglobulin M decreased [Unknown]
  - Infection [Unknown]
